FAERS Safety Report 7361465 (Version 1)
Quarter: 2020Q3

REPORT INFORMATION
  Report Type: Report from Study
  Country: US (occurrence: US)
  Receive Date: 20100421
  Receipt Date: 20100421
  Transmission Date: 20201105
  Serious: Yes (Other)
  Sender: FDA-Public Use
  Company Number: US-ROCHE-697993

PATIENT
  Age: 78 Year
  Sex: Female

DRUGS (1)
  1. IBANDRONIC ACID. [Suspect]
     Active Substance: IBANDRONIC ACID
     Indication: OSTEOPOROSIS PROPHYLAXIS
     Route: 065
     Dates: start: 20070615

REACTIONS (5)
  - Pain [Unknown]
  - Weight decreased [Unknown]
  - Rash [Unknown]
  - Throat irritation [Unknown]
  - Polymyalgia rheumatica [Unknown]

NARRATIVE: CASE EVENT DATE: 20070615
